FAERS Safety Report 9995584 (Version 1)
Quarter: 2014Q1

REPORT INFORMATION
  Report Type: Spontaneous
  Country: US (occurrence: None)
  Receive Date: 20140306
  Receipt Date: 20140306
  Transmission Date: 20141002
  Serious: Yes (Hospitalization)
  Sender: FDA-Public Use
  Company Number: UTC-045230

PATIENT
  Age: 76 Year
  Sex: Female

DRUGS (3)
  1. TYVASO (6 MICROGRAM, AEROSOL FOR INHALATION) (TREPROSTINIL SODIUM) [Suspect]
     Indication: COR PULMONALE CHRONIC
     Dosage: 216 MCG (54 MCG,4 IN 1 D),INHALATION
     Route: 055
     Dates: start: 20130111
  2. REVATIO(SILDENAFIL CITRATE)(UNKNOWN) [Concomitant]
  3. LETAIRIS (AMBRISENTAN)(UNKNOWN) [Concomitant]

REACTIONS (4)
  - Dizziness [None]
  - Asthenia [None]
  - Hypotension [None]
  - Drug dose omission [None]
